FAERS Safety Report 13329472 (Version 1)
Quarter: 2017Q1

REPORT INFORMATION
  Report Type: Spontaneous
  Country: US (occurrence: US)
  Receive Date: 20170313
  Receipt Date: 20170313
  Transmission Date: 20170428
  Serious: Yes (Hospitalization)
  Sender: FDA-Public Use
  Company Number: US-DEPOMED, INC.-US-2017DEP000472

PATIENT

DRUGS (1)
  1. GRALISE [Suspect]
     Active Substance: GABAPENTIN
     Indication: BACK PAIN
     Dosage: UNK (STATER PACK REGIMEN)

REACTIONS (5)
  - Product use issue [Unknown]
  - Depression [Unknown]
  - Pollakiuria [Unknown]
  - Gait disturbance [Unknown]
  - Pruritus [Unknown]
